FAERS Safety Report 23517139 (Version 1)
Quarter: 2024Q1

REPORT INFORMATION
  Report Type: Spontaneous
  Country: TW (occurrence: TW)
  Receive Date: 20240213
  Receipt Date: 20240213
  Transmission Date: 20240409
  Serious: Yes (Other)
  Sender: FDA-Public Use
  Company Number: TW-002147023-NVSC2024TW023706

PATIENT
  Age: 27 Year
  Sex: Male

DRUGS (4)
  1. NILOTINIB [Suspect]
     Active Substance: NILOTINIB
     Indication: Chronic myeloid leukaemia
     Dosage: UNK
     Route: 065
     Dates: start: 20221020
  2. NILOTINIB [Suspect]
     Active Substance: NILOTINIB
     Indication: Philadelphia chromosome positive
  3. DEXAMETHASONE [Suspect]
     Active Substance: DEXAMETHASONE
     Indication: Leukaemia recurrent
     Dosage: UNK
     Route: 065
  4. CYCLOSPORINE [Suspect]
     Active Substance: CYCLOSPORINE
     Indication: Product used for unknown indication
     Dosage: UNK
     Route: 065

REACTIONS (9)
  - Chronic myeloid leukaemia [Unknown]
  - Type 2 diabetes mellitus [Unknown]
  - Thrombocytopenia [Unknown]
  - Anal haemorrhage [Unknown]
  - Haemorrhagic diathesis [Unknown]
  - Increased tendency to bruise [Unknown]
  - Leukopenia [Unknown]
  - Oedema [Unknown]
  - Pain in extremity [Unknown]
